FAERS Safety Report 9921927 (Version 1)
Quarter: 2014Q1

REPORT INFORMATION
  Report Type: Spontaneous
  Country: US (occurrence: None)
  Receive Date: 20140221
  Receipt Date: 20140221
  Transmission Date: 20141002
  Serious: Yes (Other)
  Sender: FDA-Public Use
  Company Number: None

PATIENT
  Age: 70 Year
  Sex: Male
  Weight: 80.29 kg

DRUGS (1)
  1. TAMSULOSIN [Suspect]
     Indication: DYSURIA
     Route: 048

REACTIONS (4)
  - Dysuria [None]
  - Product substitution issue [None]
  - Condition aggravated [None]
  - Drug ineffective [None]
